FAERS Safety Report 7569034-2 (Version None)
Quarter: 2011Q2

REPORT INFORMATION
  Report Type: 
  Country: None (occurrence: None)
  Receive Date: 20110623
  Receipt Date: 20110616
  Transmission Date: 20111010
  Serious: Yes (Disabling, Other)
  Sender: FDA-Public Use
  Company Number: IT-ABBOTT-11P-083-0728776-00

PATIENT
  Age: 72 Year
  Sex: Female

DRUGS (5)
  1. HUMIRA [Suspect]
     Indication: PSORIATIC ARTHROPATHY
     Dates: start: 20080101
  2. OSSEOR [Concomitant]
     Indication: OSTEOPOROSIS
  3. CALCIUM CARBONATE [Concomitant]
     Indication: OSTEOPOROSIS
  4. VITAMIN D [Concomitant]
     Indication: OSTEOPOROSIS
  5. METHOTREXATE [Concomitant]
     Indication: PSORIATIC ARTHROPATHY
     Dosage: WEEKLY ADM.
     Dates: start: 20080101

REACTIONS (6)
  - FOOT FRACTURE [None]
  - PARAPROTEINAEMIA [None]
  - ANTIMITOCHONDRIAL ANTIBODY POSITIVE [None]
  - ANKLE FRACTURE [None]
  - BLOOD ALKALINE PHOSPHATASE INCREASED [None]
  - GAMMA-GLUTAMYLTRANSFERASE INCREASED [None]
